FAERS Safety Report 9538057 (Version 3)
Quarter: 2013Q4

REPORT INFORMATION
  Report Type: Spontaneous
  Country: JP (occurrence: JP)
  Receive Date: 20130920
  Receipt Date: 20131028
  Transmission Date: 20140711
  Serious: Yes (Hospitalization)
  Sender: FDA-Public Use
  Company Number: JP-ROCHE-1173906

PATIENT
  Age: 3 Year
  Sex: Male

DRUGS (19)
  1. RITUXIMAB [Suspect]
     Indication: NEPHROTIC SYNDROME
     Dosage: 200 MG SINGLE
     Route: 042
     Dates: start: 20110803
  2. METHYLPREDNISOLONE [Concomitant]
     Dosage: PULSE THERAPY: 30 MG/KG/DAY
     Route: 065
  3. PREDNISOLONE [Concomitant]
     Indication: NEPHROTIC SYNDROME
     Dosage: 60 MG/M2/DAY (DAILY)
     Route: 048
     Dates: start: 20100912, end: 20120213
  4. PREDNISOLONE [Concomitant]
     Dosage: REDUCED (40 MG/M2)
     Route: 065
  5. PREDNISOLONE [Concomitant]
     Route: 065
  6. PREDNISOLONE [Concomitant]
     Route: 065
  7. PREDNISOLONE [Concomitant]
     Dosage: DOSE REDUCTION WAS STOPPED BY ADMINISTRATION ON ALTERNATE DAYS
     Route: 065
  8. PREDNISOLONE [Concomitant]
     Dosage: 32 MG/KG/M2
     Route: 065
  9. PREDNISOLONE [Concomitant]
     Dosage: 1.8 MG/KG/DAY
     Route: 065
  10. PREDNISOLONE [Concomitant]
     Dosage: 1 MG/KG/DAY WAS CONTINUED FOR 1 MONTH,IT WAS REDUCED TO 0.25 AND 0.5 MG/KG/DAY EVERY OTHER DAY
     Route: 065
  11. CYCLOSPORINE [Concomitant]
     Indication: NEPHROTIC SYNDROME
     Route: 048
     Dates: start: 20110519, end: 20110921
  12. CYCLOSPORINE [Concomitant]
     Dosage: 3.3 MG/KG/DAY
     Route: 065
  13. CYCLOSPORINE [Concomitant]
     Dosage: HALTED
     Route: 065
  14. NORVASC [Concomitant]
     Indication: NEPHROTIC SYNDROME
     Route: 048
     Dates: start: 20110725, end: 20110923
  15. NU-LOTAN [Concomitant]
     Indication: NEPHROTIC SYNDROME
     Route: 048
     Dates: start: 20110511, end: 20110928
  16. MEVALOTIN [Concomitant]
     Indication: NEPHROTIC SYNDROME
     Route: 048
     Dates: start: 20110725, end: 20111031
  17. GASTER (JAPAN) [Concomitant]
     Indication: NEPHROTIC SYNDROME
     Route: 048
     Dates: start: 20110725, end: 20110907
  18. CALONAL [Concomitant]
     Indication: PROPHYLAXIS
     Route: 048
     Dates: start: 20110803, end: 20110803
  19. POLARAMINE [Concomitant]
     Indication: PROPHYLAXIS
     Route: 048
     Dates: start: 20110803, end: 20110803

REACTIONS (1)
  - Pneumocystis jirovecii pneumonia [Recovered/Resolved]
